FAERS Safety Report 8825183 (Version 1)
Quarter: 2012Q4

REPORT INFORMATION
  Report Type: 
  Country: GB (occurrence: GB)
  Receive Date: 20121004
  Receipt Date: 20121004
  Transmission Date: 20130627
  Serious: Yes (Life-Threatening)
  Sender: FDA-Public Use
  Company Number: GB-GLAXOSMITHKLINE-B0833635A

PATIENT
  Age: 43 Year
  Sex: Female

DRUGS (8)
  1. LAMOTRIGINE [Suspect]
     Indication: EPILEPSY
     Dosage: 200MG Per day
     Route: 048
     Dates: start: 20120110, end: 20120907
  2. BUSPIRONE [Concomitant]
     Indication: ANXIETY
     Dosage: 30MG Per day
     Dates: start: 201206
  3. BUSPIRONE [Concomitant]
     Indication: ANXIETY
     Dates: start: 201206
  4. FOLIC ACID [Concomitant]
     Indication: ALCOHOL PROBLEM
     Dosage: 5MG Per day
     Dates: start: 201110
  5. OMEPRAZOLE [Concomitant]
     Indication: GASTROOESOPHAGEAL REFLUX DISEASE
     Dosage: 40MG Per day
     Dates: start: 201106
  6. PROPRANOLOL [Concomitant]
     Indication: ANXIETY
     Dates: start: 200108
  7. FLIXONASE [Concomitant]
     Indication: NASOPHARYNGITIS
     Dosage: 100MCG Per day
     Dates: start: 200810
  8. AMITRIPTYLINE [Concomitant]
     Indication: ANXIETY
     Dosage: 150MG Per day
     Dates: start: 201004

REACTIONS (2)
  - Thrombocytopenia [Recovered/Resolved]
  - Contusion [Unknown]
